FAERS Safety Report 6153569-3 (Version None)
Quarter: 2009Q2

REPORT INFORMATION
  Report Type: 
  Country: None (occurrence: None)
  Receive Date: 20090409
  Receipt Date: 20090409
  Transmission Date: 20091009
  Serious: Yes (Life-Threatening, Hospitalization)
  Sender: FDA-Public Use
  Company Number: None

PATIENT
  Sex: Male
  Weight: 87 kg

DRUGS (1)
  1. EPHEDRINE/GUAIFENESIN 25 MG/200 MG CB DISTRIBUTORS, INC [Suspect]
     Indication: ASTHMA
     Dosage: APPROXIMATELY 20 TABS WEEKLY PO
     Route: 048

REACTIONS (5)
  - DIALYSIS [None]
  - DRUG TOXICITY [None]
  - HEPATIC FAILURE [None]
  - LIVER TRANSPLANT [None]
  - RENAL FAILURE ACUTE [None]
